FAERS Safety Report 5672051-0 (Version None)
Quarter: 2008Q2

REPORT INFORMATION
  Report Type: 
  Country: None (occurrence: None)
  Receive Date: 20080219
  Receipt Date: 20071220
  Transmission Date: 20081010
  Serious: No
  Sender: FDA-Public Use
  Company Number: TPA2007A02544

PATIENT
  Age: 50 Year
  Sex: Male
  Weight: 52.1637 kg

DRUGS (4)
  1. ROZEREM [Suspect]
     Indication: INSOMNIA
     Dosage: 8 MG, QHS, PER ORAL ; 8 MG, QHS, PER ORAL
     Route: 048
     Dates: start: 20070101, end: 20070101
  2. ROZEREM [Suspect]
     Indication: INSOMNIA
     Dosage: 8 MG, QHS, PER ORAL ; 8 MG, QHS, PER ORAL
     Route: 048
     Dates: start: 20070101
  3. MIRALAX [Concomitant]
  4. VITAMIN B12 [Concomitant]

REACTIONS (1)
  - INITIAL INSOMNIA [None]
